FAERS Safety Report 14689208 (Version 1)
Quarter: 2018Q1

REPORT INFORMATION
  Report Type: Spontaneous
  Country: US (occurrence: US)
  Receive Date: 20180327
  Receipt Date: 20180327
  Transmission Date: 20180509
  Serious: Yes (Disabling)
  Sender: FDA-Public Use
  Company Number: None

PATIENT
  Age: 61 Year
  Sex: Male
  Weight: 78.75 kg

DRUGS (9)
  1. TIMOLOL. [Concomitant]
     Active Substance: TIMOLOL
  2. VITAMIN D [Concomitant]
     Active Substance: CHOLECALCIFEROL
  3. ZANTAC [Concomitant]
     Active Substance: RANITIDINE HYDROCHLORIDE
  4. CLONAZEPAM. [Concomitant]
     Active Substance: CLONAZEPAM
  5. MEYERS COCKTAIL PLUS GLUTATHIONE INFUSION [Suspect]
     Active Substance: MINERALS\VITAMINS
     Indication: DETOXIFICATION
     Dates: start: 20141119, end: 20141119
  6. TRAZODONE [Concomitant]
     Active Substance: TRAZODONE HYDROCHLORIDE
  7. LUMIGAM [Concomitant]
  8. COQ10 [Concomitant]
     Active Substance: UBIDECARENONE
  9. GLUTATHIONE [Suspect]
     Active Substance: GLUTATHIONE

REACTIONS (3)
  - Connective tissue disorder [None]
  - Tongue discomfort [None]
  - Dry skin [None]

NARRATIVE: CASE EVENT DATE: 20141119
